FAERS Safety Report 11905647 (Version 2)
Quarter: 2016Q1

REPORT INFORMATION
  Report Type: Spontaneous
  Country: CZ (occurrence: CZ)
  Receive Date: 20160110
  Receipt Date: 20160202
  Transmission Date: 20160526
  Serious: Yes (Death, Hospitalization, Other)
  Sender: FDA-Public Use
  Company Number: CZ-TEVA-623507ISR

PATIENT
  Age: 65 Year
  Sex: Female

DRUGS (5)
  1. TULIP 10 MG [Suspect]
     Active Substance: ATORVASTATIN
     Dosage: 80 TABLETS. TOTAL DOSE OF 0.8 G
  2. ARTRODAR 50 MG [Suspect]
     Active Substance: DIACEREIN
     Dosage: 80 TABLETS. TOTAL DOSE OF 4 G.
  3. MOXOGAMMA 0.3 MG [Suspect]
     Active Substance: MOXONIDINE
     Dosage: 50 TABLETS. TOTAL DOSE OF 0.02 G
  4. EBRANTIL RETARED 30 MG [Suspect]
     Active Substance: URAPIDIL
     Dosage: 250 CAPSULE. 7.5 G
  5. TARKA [Suspect]
     Active Substance: TRANDOLAPRIL\VERAPAMIL HYDROCHLORIDE

REACTIONS (12)
  - Cardiogenic shock [Fatal]
  - Cardiomyopathy [Unknown]
  - Loss of consciousness [Unknown]
  - Overdose [Unknown]
  - Drug abuse [Unknown]
  - Acute kidney injury [Fatal]
  - Toxicity to various agents [Fatal]
  - Intentional overdose [None]
  - Distributive shock [Fatal]
  - Rhabdomyolysis [Unknown]
  - Metabolic acidosis [Unknown]
  - Toxicity to various agents [Unknown]
